FAERS Safety Report 7589601 (Version 4)
Quarter: 2013Q2

REPORT INFORMATION
  Report Type: Spontaneous
  Country: JP (occurrence: JP)
  Receive Date: 20100916
  Receipt Date: 20130403
  Transmission Date: 20140414
  Serious: No
  Sender: FDA-Public Use
  Company Number: JP-PFIZER INC-2010113718

PATIENT
  Age: 66 Year
  Sex: Female

DRUGS (6)
  1. VFEND [Suspect]
     Indication: FUNGAL INFECTION
     Dosage: 200 MG/DAY
     Route: 048
     Dates: start: 20100715, end: 20100728
  2. VFEND [Suspect]
     Indication: ASPERGILLUS INFECTION
  3. TAKEPRON [Suspect]
  4. DEPROMEL [Concomitant]
     Route: 048
  5. LENDORMIN [Concomitant]
     Route: 048
  6. PREDONINE [Concomitant]

REACTIONS (5)
  - Speech disorder [Recovered/Resolved]
  - Drug level increased [Recovered/Resolved]
  - Photophobia [Recovered/Resolved]
  - Somnolence [Recovered/Resolved]
  - Liver function test abnormal [Recovered/Resolved]
